FAERS Safety Report 9496489 (Version 1)
Quarter: 2013Q3

REPORT INFORMATION
  Report Type: Report from Study
  Country: US (occurrence: US)
  Receive Date: 20130904
  Receipt Date: 20130904
  Transmission Date: 20140515
  Serious: Yes (Hospitalization)
  Sender: FDA-Public Use
  Company Number: US-ROCHE-1268486

PATIENT
  Age: 48 Year
  Sex: Female
  Weight: 49.94 kg

DRUGS (11)
  1. HERCEPTIN [Suspect]
     Indication: BREAST CANCER
     Route: 065
  2. METHADONE [Concomitant]
  3. XANAX [Concomitant]
  4. MOTRIN [Concomitant]
  5. VICODIN ES [Concomitant]
  6. KLONOPIN [Concomitant]
     Route: 065
  7. SENOKOT [Concomitant]
     Route: 048
  8. LACTULOSE [Concomitant]
     Route: 065
  9. ALBUTEROL [Concomitant]
     Route: 065
  10. BENADRYL (UNITED STATES) [Concomitant]
     Route: 065
  11. AMBIEN [Concomitant]
     Route: 065

REACTIONS (19)
  - Back pain [Unknown]
  - Pain in extremity [Unknown]
  - Abasia [Unknown]
  - Lobar pneumonia [Unknown]
  - Pain in extremity [Unknown]
  - Disease progression [Unknown]
  - Chest pain [Unknown]
  - Dyspnoea [Unknown]
  - Nausea [Unknown]
  - Vomiting [Unknown]
  - Muscular weakness [Unknown]
  - Anxiety [Unknown]
  - Productive cough [Unknown]
  - Cough [Unknown]
  - Increased upper airway secretion [Unknown]
  - Wheezing [Unknown]
  - Pain in extremity [Unknown]
  - Arthralgia [Unknown]
  - Rhonchi [Unknown]
